FAERS Safety Report 5013427-4 (Version None)
Quarter: 2006Q2

REPORT INFORMATION
  Report Type: 
  Country: None (occurrence: None)
  Receive Date: 20060525
  Receipt Date: 20060509
  Transmission Date: 20061013
  Serious: Yes (Hospitalization, Other)
  Sender: FDA-Public Use
  Company Number: US200605002100

PATIENT
  Sex: Female

DRUGS (2)
  1. HUMULIN 70/30 [Suspect]
     Dosage: SEE IMAGE
     Dates: start: 19940101
  2. HUMULIN 70/30 [Suspect]
     Dosage: SEE IMAGE
     Dates: start: 19940101

REACTIONS (8)
  - BONE DENSITY DECREASED [None]
  - FALL [None]
  - FEMUR FRACTURE [None]
  - HYPOAESTHESIA [None]
  - IMPAIRED HEALING [None]
  - MOBILITY DECREASED [None]
  - PHARMACEUTICAL PRODUCT COMPLAINT [None]
  - VISUAL ACUITY REDUCED [None]
